FAERS Safety Report 5916900-7 (Version None)
Quarter: 2008Q4

REPORT INFORMATION
  Report Type: 
  Country: None (occurrence: None)
  Receive Date: 20081013
  Receipt Date: 20081009
  Transmission Date: 20090506
  Serious: No
  Sender: FDA-Public Use
  Company Number: US-B.I. PHARMACEUTICALS,INC./RIDGEFIELD-2008-BP-15606BP

PATIENT
  Age: 67 Year
  Sex: Female

DRUGS (3)
  1. ZANTAC 150 [Suspect]
     Indication: GASTROOESOPHAGEAL REFLUX DISEASE
     Dosage: 300MG
     Route: 048
     Dates: start: 20081001
  2. ZANTAC 150 [Suspect]
     Indication: DYSPEPSIA
  3. PROTONIX [Concomitant]

REACTIONS (1)
  - CONSTIPATION [None]
